FAERS Safety Report 13924496 (Version 1)
Quarter: 2017Q3

REPORT INFORMATION
  Report Type: Spontaneous
  Country: US (occurrence: US)
  Receive Date: 20170831
  Receipt Date: 20170831
  Transmission Date: 20171127
  Serious: Yes (Hospitalization, Other)
  Sender: FDA-Public Use
  Company Number: US-ALVOGEN-2017-ALVOGEN-093229

PATIENT
  Age: 67 Year
  Sex: Female
  Weight: 81.65 kg

DRUGS (3)
  1. ATENOLOL. [Suspect]
     Active Substance: ATENOLOL
     Indication: CARDIAC DISORDER
     Route: 048
  2. ASPIRIN. [Concomitant]
     Active Substance: ASPIRIN
     Indication: PRODUCT USED FOR UNKNOWN INDICATION
     Route: 048
     Dates: start: 201708
  3. BRILINTA [Suspect]
     Active Substance: TICAGRELOR
     Indication: STENT PLACEMENT
     Route: 048
     Dates: start: 20170816

REACTIONS (10)
  - Hospitalisation [Unknown]
  - Condition aggravated [Not Recovered/Not Resolved]
  - Diabetes mellitus [Unknown]
  - Hypoaesthesia [Not Recovered/Not Resolved]
  - Paraesthesia [Not Recovered/Not Resolved]
  - Stent placement [Unknown]
  - Blood potassium decreased [Not Recovered/Not Resolved]
  - Renal disorder [Unknown]
  - Blood cholesterol increased [Unknown]
  - Stent placement [Unknown]

NARRATIVE: CASE EVENT DATE: 201708
